FAERS Safety Report 5106212-6 (Version None)
Quarter: 2006Q3

REPORT INFORMATION
  Report Type: 
  Country: None (occurrence: None)
  Receive Date: 20060912
  Receipt Date: 20060831
  Transmission Date: 20061208
  Serious: Yes (Life-Threatening, Hospitalization)
  Sender: FDA-Public Use
  Company Number: 2006104206

PATIENT
  Age: 60 Year
  Sex: Male
  Weight: 62 kg

DRUGS (4)
  1. SUTENT [Suspect]
     Indication: METASTATIC RENAL CELL CARCINOMA
     Dosage: 50 MG (50 MG, 1 IN 1 D), ORAL
     Route: 048
     Dates: start: 20060512, end: 20060827
  2. TRAMADOL (TRAMADOL0 [Concomitant]
  3. FOSINOPRIL SODIUM [Concomitant]
  4. CODEINE SUL TAB [Concomitant]

REACTIONS (3)
  - DIARRHOEA [None]
  - GENERAL PHYSICAL HEALTH DETERIORATION [None]
  - NECROTISING FASCIITIS [None]
